FAERS Safety Report 6240339-0 (Version None)
Quarter: 2009Q2

REPORT INFORMATION
  Report Type: 
  Country: None (occurrence: None)
  Receive Date: 20090623
  Receipt Date: 20080730
  Transmission Date: 20091009
  Serious: No
  Sender: FDA-Public Use
  Company Number: US-ASTRAZENECA-2008UW15754

PATIENT
  Age: 65 Year
  Sex: Female
  Weight: 137.4 kg

DRUGS (10)
  1. PULMICORT RESPULES [Suspect]
     Indication: CHRONIC OBSTRUCTIVE PULMONARY DISEASE
     Dosage: 0.5 MG/2 ML TWICE DAILY
     Route: 055
  2. IPRATROPIUM BROMIDE [Suspect]
     Route: 065
  3. ALBUTEROL SULFATE [Suspect]
     Route: 065
  4. LASIX [Concomitant]
  5. PRILOSEC [Concomitant]
     Route: 048
  6. PROZAC [Concomitant]
  7. DETROL [Concomitant]
  8. SYNTHROID [Concomitant]
  9. BYSTOLIC ADVAIR [Concomitant]
     Dosage: 250/50 2 PUFFS
  10. SPIRIVA [Concomitant]

REACTIONS (4)
  - IRRITABILITY [None]
  - MEDICATION ERROR [None]
  - PARANOIA [None]
  - PERSONALITY CHANGE [None]
